FAERS Safety Report 6095294-3 (Version None)
Quarter: 2009Q1

REPORT INFORMATION
  Report Type: 
  Country: None (occurrence: None)
  Receive Date: 20090227
  Receipt Date: 20080303
  Transmission Date: 20090719
  Serious: No
  Sender: FDA-Public Use
  Company Number: A0712944A

PATIENT
  Age: 55 Year
  Sex: Female

DRUGS (5)
  1. LAMICTAL [Suspect]
     Indication: BIPOLAR DISORDER
     Dosage: 100MG PER DAY
     Route: 048
     Dates: start: 20080125, end: 20080221
  2. CEPHALEXIN [Suspect]
     Dosage: 500MG TWICE PER DAY
     Dates: start: 20080125, end: 20080131
  3. CLARITHROMYCIN [Suspect]
     Dosage: 500MG TWICE PER DAY
     Dates: start: 20080131, end: 20080206
  4. PLAQUENIL [Concomitant]
  5. PROZAC [Concomitant]

REACTIONS (9)
  - DRY MOUTH [None]
  - DRY SKIN [None]
  - ERYTHEMA [None]
  - ORAL PAIN [None]
  - PAIN [None]
  - PRURITUS GENERALISED [None]
  - RASH [None]
  - VULVOVAGINAL DISCOMFORT [None]
  - VULVOVAGINAL PAIN [None]
